FAERS Safety Report 9217134 (Version 2)
Quarter: 2013Q2

REPORT INFORMATION
  Report Type: Spontaneous
  Country: ES (occurrence: ES)
  Receive Date: 20130408
  Receipt Date: 20130408
  Transmission Date: 20140414
  Serious: Yes (Other)
  Sender: FDA-Public Use
  Company Number: ES-BAYER-2013-042858

PATIENT
  Age: 51 Year
  Sex: Female

DRUGS (1)
  1. ULTRAVIST [Suspect]
     Dosage: 100 ML, UNK
     Route: 042
     Dates: start: 20130308, end: 20130308

REACTIONS (4)
  - Tongue pruritus [Recovered/Resolved]
  - Dysphagia [Recovered/Resolved]
  - Vomiting [Recovered/Resolved]
  - Tremor [Recovered/Resolved]
